FAERS Safety Report 24352277 (Version 1)
Quarter: 2024Q3

REPORT INFORMATION
  Report Type: Spontaneous
  Country: US (occurrence: US)
  Receive Date: 20240923
  Receipt Date: 20240923
  Transmission Date: 20241017
  Serious: No
  Sender: PERRIGO
  Company Number: US-PERRIGO-24US007190

PATIENT
  Age: 68 Year
  Sex: Female
  Weight: 58.05 kg

DRUGS (3)
  1. NASONEX [Suspect]
     Active Substance: MOMETASONE FUROATE
     Indication: Prophylaxis
     Dosage: 100 MCG, QHS
     Route: 045
     Dates: start: 20220317, end: 20240727
  2. NASONEX [Suspect]
     Active Substance: MOMETASONE FUROATE
     Dosage: 50 MCG, QAM
     Route: 045
     Dates: start: 202407, end: 20240727
  3. NASONEX [Suspect]
     Active Substance: MOMETASONE FUROATE
     Dosage: UNKNOWN, QHS
     Route: 045
     Dates: start: 20240728, end: 20240728

REACTIONS (3)
  - Nasal congestion [Not Recovered/Not Resolved]
  - Paranasal sinus discomfort [Not Recovered/Not Resolved]
  - Drug ineffective for unapproved indication [Unknown]

NARRATIVE: CASE EVENT DATE: 20220317
